FAERS Safety Report 21112342 (Version 1)
Quarter: 2022Q3

REPORT INFORMATION
  Report Type: Spontaneous
  Country: US (occurrence: None)
  Receive Date: 20220721
  Receipt Date: 20220721
  Transmission Date: 20221027
  Serious: No
  Sender: FDA-Public Use
  Company Number: None

PATIENT
  Sex: 0

DRUGS (6)
  1. FENTANYL TRANSDERMAL SYSTEM [Suspect]
     Active Substance: FENTANYL
  2. MORPHINE [Suspect]
     Active Substance: MORPHINE
  3. DILANTIN [Suspect]
     Active Substance: PHENYTOIN
  4. FENTANYL TRANSDERMAL SYSTEM [Concomitant]
     Active Substance: FENTANYL
  5. DILANTIN [Concomitant]
     Active Substance: PHENYTOIN
  6. MORPHINE [Concomitant]
     Active Substance: MORPHINE

REACTIONS (2)
  - Confusional state [None]
  - Amnesia [None]
